FAERS Safety Report 6120739-X (Version None)
Quarter: 2009Q1

REPORT INFORMATION
  Report Type: 
  Country: None (occurrence: None)
  Receive Date: 20090317
  Receipt Date: 20090309
  Transmission Date: 20090719
  Serious: Yes (Other)
  Sender: FDA-Public Use
  Company Number: US-ELI_LILLY_AND_COMPANY-US200903002108

PATIENT
  Sex: Female
  Weight: 94.104 kg

DRUGS (15)
  1. BYETTA [Suspect]
     Indication: TYPE 2 DIABETES MELLITUS
     Dosage: 5 UG, 2/D
     Route: 058
     Dates: start: 20081128, end: 20081129
  2. BYETTA [Suspect]
     Dosage: 5 UG, 2/D
     Route: 058
     Dates: start: 20090214
  3. METFORMIN HCL [Concomitant]
     Indication: TYPE 2 DIABETES MELLITUS
     Dosage: 500 MG, 2/D
     Route: 048
  4. GLYBURIDE [Concomitant]
     Indication: TYPE 2 DIABETES MELLITUS
     Dosage: 2.5 MG, 2/D
     Route: 048
     Dates: end: 20090213
  5. ACTOS                                   /AUS/ [Concomitant]
     Indication: TYPE 2 DIABETES MELLITUS
     Dosage: 45 MG, DAILY (1/D)
     Route: 048
     Dates: start: 20070101, end: 20081127
  6. LIPITOR [Concomitant]
     Indication: BLOOD CHOLESTEROL
     Dosage: 20 MG, DAILY (1/D)
     Route: 048
     Dates: end: 20090101
  7. LIPITOR [Concomitant]
     Dosage: 80 MG, DAILY (1/D)
     Route: 048
     Dates: start: 20090101
  8. ZETIA [Concomitant]
     Dosage: 10 MG, DAILY (1/D)
     Route: 048
  9. NEXIUM [Concomitant]
     Indication: GASTRIC DISORDER
     Dosage: 40 MG, 2/D
     Route: 048
  10. CARAFATE [Concomitant]
     Indication: ULCER
     Dosage: 10 ML, DAILY (1/D)
  11. METOCLOPRAMIDE [Concomitant]
     Indication: ULCER
     Dosage: 10 MG, DAILY (1/D)
     Route: 048
  12. ISOSORBIDE [Concomitant]
     Indication: ANGINA PECTORIS
     Dosage: 30 MG, DAILY (1/D)
     Route: 048
     Dates: start: 20060101
  13. PROPRANOLOL [Concomitant]
     Indication: MIGRAINE
     Dosage: 20 MG, 2/D
     Route: 048
  14. EXFORGE                            /01634301/ [Concomitant]
     Indication: HYPERTENSION
     Dosage: UNK, DAILY (1/D)
     Route: 048
     Dates: start: 20070101
  15. ASPIRIN [Concomitant]
     Dosage: 81 MG, UNKNOWN

REACTIONS (9)
  - BLADDER SPASM [None]
  - BLOOD GLUCOSE DECREASED [None]
  - BLOOD GLUCOSE INCREASED [None]
  - DYSURIA [None]
  - FEELING JITTERY [None]
  - INTRADUCTAL PAPILLOMA OF BREAST [None]
  - NAUSEA [None]
  - PRESYNCOPE [None]
  - URINARY TRACT INFECTION [None]
